FAERS Safety Report 6767832-6 (Version None)
Quarter: 2010Q2

REPORT INFORMATION
  Report Type: 
  Country: None (occurrence: None)
  Receive Date: 20100614
  Receipt Date: 20100604
  Transmission Date: 20101027
  Serious: Yes (Disabling)
  Sender: FDA-Public Use
  Company Number: US-ROCHE-703307

PATIENT
  Sex: Female

DRUGS (2)
  1. BONIVA [Suspect]
     Indication: OSTEOPOROSIS
     Route: 048
     Dates: end: 20091001
  2. FEMHRT [Concomitant]
     Indication: MENOPAUSE
     Route: 048

REACTIONS (1)
  - MYOSITIS [None]
